FAERS Safety Report 16388627 (Version 7)
Quarter: 2019Q4

REPORT INFORMATION
  Report Type: Spontaneous
  Country: US (occurrence: US)
  Receive Date: 20190604
  Receipt Date: 20191021
  Transmission Date: 20200122
  Serious: Yes (Hospitalization, Other)
  Sender: FDA-Public Use
  Company Number: US-GLAXOSMITHKLINE-US2019AMR096910

PATIENT
  Sex: Female

DRUGS (5)
  1. FLOLAN DILUENT PH 12 [Suspect]
     Active Substance: GLYCINE\MANNITOL\SODIUM CHLORIDE
     Indication: PULMONARY ARTERIAL HYPERTENSION
     Dosage: UNK
     Route: 042
     Dates: start: 20160714
  2. FLOLAN [Suspect]
     Active Substance: EPOPROSTENOL SODIUM
     Indication: PULMONARY ARTERIAL HYPERTENSION
     Dosage: 71 NG/KG/MIN, CO
     Route: 042
     Dates: start: 20140131
  3. WARFARIN [Concomitant]
     Active Substance: WARFARIN
     Indication: PRODUCT USED FOR UNKNOWN INDICATION
     Dosage: UNK
     Route: 065
  4. FLOLAN [Suspect]
     Active Substance: EPOPROSTENOL SODIUM
     Dosage: 63 NG/KG/MIN, CO
     Route: 065
  5. LETAIRIS [Concomitant]
     Active Substance: AMBRISENTAN
     Indication: PRODUCT USED FOR UNKNOWN INDICATION
     Dosage: 10 MG, 1D
     Route: 065

REACTIONS (17)
  - Hospitalisation [Unknown]
  - Weight decreased [Unknown]
  - Pulmonary pain [Unknown]
  - Feeling abnormal [Unknown]
  - Dysstasia [Unknown]
  - Asthenia [Unknown]
  - Bone pain [Unknown]
  - Pneumonia [Unknown]
  - Hypotension [Unknown]
  - Infusion site irritation [Recovered/Resolved]
  - Pain [Unknown]
  - Palpitations [Unknown]
  - Oedema [Unknown]
  - Pain in extremity [Unknown]
  - Nasopharyngitis [Recovering/Resolving]
  - Dyspnoea [Unknown]
  - Cough [Not Recovered/Not Resolved]

NARRATIVE: CASE EVENT DATE: 2019
